FAERS Safety Report 18270685 (Version 2)
Quarter: 2020Q3

REPORT INFORMATION
  Report Type: Spontaneous
  Country: US (occurrence: US)
  Receive Date: 20200915
  Receipt Date: 20200924
  Transmission Date: 20201103
  Serious: Yes (Death, Other)
  Sender: FDA-Public Use
  Company Number: US-GILEAD-2020-0494944

PATIENT
  Age: 87 Year
  Sex: Female
  Weight: 102 kg

DRUGS (8)
  1. NYSTATIN. [Concomitant]
     Active Substance: NYSTATIN
     Dosage: 100,000 UNITS
     Route: 061
     Dates: start: 20200907, end: 20200909
  2. HYDROMORPHONE [Concomitant]
     Active Substance: HYDROMORPHONE
     Dosage: UNK
     Dates: start: 20200907, end: 20200909
  3. WARFARIN [Concomitant]
     Active Substance: WARFARIN
  4. LIDOCAINE. [Concomitant]
     Active Substance: LIDOCAINE
     Dosage: UNK
     Dates: start: 20200908, end: 20200909
  5. LORAZEPAM. [Concomitant]
     Active Substance: LORAZEPAM
     Dosage: 1 MG, QD
     Route: 042
     Dates: start: 20200907, end: 20200909
  6. LORAZEPAM. [Concomitant]
     Active Substance: LORAZEPAM
     Dosage: 2 MG
     Route: 042
     Dates: start: 20200909
  7. REMDESIVIR. [Suspect]
     Active Substance: REMDESIVIR
     Indication: COVID-19
     Dosage: 100 MG
     Route: 065
     Dates: start: 20200826, end: 20200830
  8. OXYGEN. [Concomitant]
     Active Substance: OXYGEN

REACTIONS (2)
  - Acute respiratory failure [Fatal]
  - Pneumonia bacterial [Fatal]
